FAERS Safety Report 4528194-8 (Version None)
Quarter: 2004Q4

REPORT INFORMATION
  Report Type: 
  Country: None (occurrence: None)
  Receive Date: 20041130
  Receipt Date: 20040803
  Transmission Date: 20050328
  Serious: No
  Sender: FDA-Public Use
  Company Number: WAES 0407USA00706

PATIENT
  Sex: Male

DRUGS (3)
  1. ZETIA [Suspect]
     Indication: LOW DENSITY LIPOPROTEIN DECREASED
     Dosage: 10 MG/DAILY/PO
     Route: 048
  2. COREG [Concomitant]
  3. ASPIRIN [Concomitant]

REACTIONS (2)
  - PAIN IN JAW [None]
  - TOOTHACHE [None]
